FAERS Safety Report 24055810 (Version 1)
Quarter: 2024Q3

REPORT INFORMATION
  Report Type: Spontaneous
  Country: US (occurrence: None)
  Receive Date: 20240703
  Receipt Date: 20240703
  Transmission Date: 20241016
  Serious: No
  Sender: Public
  Company Number: None

PATIENT
  Age: 71 Year
  Sex: Male
  Weight: 74.25 kg

DRUGS (6)
  1. CEFPODOXIME PROXETIL [Suspect]
     Active Substance: CEFPODOXIME PROXETIL
     Indication: Pneumonia
     Dosage: 20 TABLETS TWICE A DAY ORAL
     Route: 048
     Dates: start: 20240605, end: 20240615
  2. VITAMINS [Concomitant]
     Active Substance: VITAMINS
  3. COENZYME Q10 [Concomitant]
     Active Substance: DIETARY SUPPLEMENT\UBIDECARENONE
  4. saw palmetto [Concomitant]
  5. HERBALS\TURMERIC [Concomitant]
     Active Substance: HERBALS\TURMERIC
  6. thyroid synergy [Concomitant]

REACTIONS (2)
  - Diplopia [None]
  - Drug hypersensitivity [None]

NARRATIVE: CASE EVENT DATE: 20240605
